FAERS Safety Report 25320089 (Version 2)
Quarter: 2025Q2

REPORT INFORMATION
  Report Type: Spontaneous
  Country: US (occurrence: US)
  Receive Date: 20250515
  Receipt Date: 20250516
  Transmission Date: 20250717
  Serious: No
  Sender: BRISTOL-MYERS SQUIBB COMPANY
  Company Number: US-BRISTOL-MYERS SQUIBB COMPANY-2025-070381

PATIENT
  Age: 77 Year
  Sex: Male

DRUGS (10)
  1. POMALYST [Suspect]
     Active Substance: POMALIDOMIDE
     Indication: Plasma cell myeloma
     Route: 048
     Dates: start: 20250121
  2. ASPIRIN [Concomitant]
     Active Substance: ASPIRIN
  3. VITAMIN C [Concomitant]
     Active Substance: ASCORBIC ACID
  4. DARZALEX [Concomitant]
     Active Substance: DARATUMUMAB
  5. MONTELUKAST [Concomitant]
     Active Substance: MONTELUKAST
  6. ACYCLOVIR [Concomitant]
     Active Substance: ACYCLOVIR
  7. DEXAMETHASONE [Concomitant]
     Active Substance: DEXAMETHASONE
  8. FUROSEMIDE [Concomitant]
     Active Substance: FUROSEMIDE
  9. ONDANSETRON [Concomitant]
     Active Substance: ONDANSETRON
  10. VITAMIN B12 [Concomitant]
     Active Substance: CYANOCOBALAMIN

REACTIONS (1)
  - Laboratory test abnormal [Not Recovered/Not Resolved]

NARRATIVE: CASE EVENT DATE: 20250501
